FAERS Safety Report 6480000-0 (Version None)
Quarter: 2009Q4

REPORT INFORMATION
  Report Type: 
  Country: None (occurrence: None)
  Receive Date: 20091208
  Receipt Date: 20091123
  Transmission Date: 20100525
  Serious: Yes (Hospitalization)
  Sender: FDA-Public Use
  Company Number: US-SANOFI-AVENTIS-2009SA006281

PATIENT
  Age: 79 Year
  Sex: Female

DRUGS (15)
  1. MULTAQ [Suspect]
     Route: 065
     Dates: start: 20090101, end: 20090101
  2. SYNTHROID [Concomitant]
  3. PIOGLITAZONE [Concomitant]
  4. EVISTA [Concomitant]
  5. VERAPAMIL [Concomitant]
  6. LISINOPRIL [Concomitant]
  7. FLEXERIL [Concomitant]
  8. LIPITOR [Concomitant]
  9. COUMADIN [Concomitant]
  10. PARACETAMOL/PHENYLTOLOXAMINE CITRATE [Concomitant]
  11. LASIX [Concomitant]
  12. CALCIUM [Concomitant]
  13. LOVAZA [Concomitant]
  14. VITAMINS NOS [Concomitant]
  15. MAGNESIUM [Concomitant]

REACTIONS (1)
  - TREMOR [None]
